FAERS Safety Report 22524198 (Version 1)
Quarter: 2023Q2

REPORT INFORMATION
  Report Type: Report from Study
  Country: CA (occurrence: CA)
  Receive Date: 20230606
  Receipt Date: 20230606
  Transmission Date: 20230722
  Serious: Yes (Death)
  Sender: FDA-Public Use
  Company Number: CA-BEH-2023159581

PATIENT
  Age: 64 Year
  Sex: Male
  Weight: 80 kg

DRUGS (6)
  1. HIZENTRA [Suspect]
     Active Substance: HUMAN IMMUNOGLOBULIN G
     Indication: Secondary immunodeficiency
     Dosage: 18 GRAM, QW
     Route: 065
     Dates: start: 20230209
  2. ATORVASTATIN [Concomitant]
     Active Substance: ATORVASTATIN
  3. ZOPICLONE [Concomitant]
     Active Substance: ZOPICLONE
  4. PREGABALIN [Concomitant]
     Active Substance: PREGABALIN
  5. PERINDOPRIL [Concomitant]
     Active Substance: PERINDOPRIL
  6. XARELTO [Concomitant]
     Active Substance: RIVAROXABAN

REACTIONS (1)
  - Death [Fatal]

NARRATIVE: CASE EVENT DATE: 20230523
